FAERS Safety Report 8062269-4 (Version None)
Quarter: 2012Q1

REPORT INFORMATION
  Report Type: 
  Country: None (occurrence: None)
  Receive Date: 20120113
  Receipt Date: 20120105
  Transmission Date: 20120608
  Serious: Yes (Death, Other)
  Sender: FDA-Public Use
  Company Number: AUR-APL-2011-04403

PATIENT
  Age: 21 Year
  Sex: Male
  Weight: 120 kg

DRUGS (3)
  1. FLUOXETINE [Suspect]
     Indication: OBSESSIVE-COMPULSIVE DISORDER
     Dosage: 60 MG (60 MG, 1 IN 1 D), ORAL
     Route: 048
     Dates: start: 20091101, end: 20110705
  2. PREGABALIN [Suspect]
     Indication: OBSESSIVE-COMPULSIVE DISORDER
     Dosage: 450 MG (225 MG, 2 IN 1 D), ORAL
     Route: 048
     Dates: start: 20091101, end: 20110705
  3. QUETIAPINE FUMARATE [Suspect]
     Indication: OBSESSIVE-COMPULSIVE DISORDER
     Dosage: 800 MG (800 MG, 1 IN 1 D), ORAL
     Route: 048
     Dates: start: 20091101, end: 20110705

REACTIONS (10)
  - ACUTE ABDOMEN [None]
  - RHABDOMYOLYSIS [None]
  - MULTI-ORGAN FAILURE [None]
  - PANCREATITIS ACUTE [None]
  - PANCREATITIS HAEMORRHAGIC [None]
  - HYPERPYREXIA [None]
  - THROMBOSIS [None]
  - SEPTIC SHOCK [None]
  - SYSTEMIC INFLAMMATORY RESPONSE SYNDROME [None]
  - INFECTIOUS PERITONITIS [None]
